FAERS Safety Report 20680161 (Version 1)
Quarter: 2022Q2

REPORT INFORMATION
  Report Type: Spontaneous
  Country: US (occurrence: None)
  Receive Date: 20220405
  Receipt Date: 20220405
  Transmission Date: 20220721
  Serious: Yes (Hospitalization)
  Sender: FDA-Public Use
  Company Number: None

PATIENT

DRUGS (1)
  1. OCREVUS [Suspect]
     Active Substance: OCRELIZUMAB

REACTIONS (6)
  - Therapy non-responder [None]
  - Guillain-Barre syndrome [None]
  - Asthenia [None]
  - COVID-19 [None]
  - Thrombosis [None]
  - Multiple sclerosis [None]
